FAERS Safety Report 5615900-4 (Version None)
Quarter: 2008Q1

REPORT INFORMATION
  Report Type: 
  Country: None (occurrence: None)
  Receive Date: 20080201
  Receipt Date: 20080118
  Transmission Date: 20080703
  Serious: Yes (Hospitalization)
  Sender: FDA-Public Use
  Company Number: 2008S1000941

PATIENT
  Age: 80 Year
  Sex: Female

DRUGS (2)
  1. LORAZEPAM [Suspect]
     Dosage: ORAL
     Route: 048
     Dates: start: 20080101
  2. TEMESTA /00273201/ [Concomitant]

REACTIONS (1)
  - LOSS OF CONSCIOUSNESS [None]
